FAERS Safety Report 10363661 (Version 1)
Quarter: 2014Q3

REPORT INFORMATION
  Report Type: Spontaneous
  Country: US (occurrence: US)
  Receive Date: 20140805
  Receipt Date: 20140805
  Transmission Date: 20150326
  Serious: Yes (Hospitalization)
  Sender: FDA-Public Use
  Company Number: US-009507513-1407USA011988

PATIENT
  Sex: Female

DRUGS (2)
  1. NUVARING [Suspect]
     Active Substance: ETHINYL ESTRADIOL\ETONOGESTREL
     Dosage: UNK
     Route: 067
  2. NUVARING [Suspect]
     Active Substance: ETHINYL ESTRADIOL\ETONOGESTREL
     Dosage: 3 WEEKS ON, 1 WEEK OFF
     Route: 067
     Dates: start: 20070919, end: 20080112

REACTIONS (6)
  - Jugular vein thrombosis [Unknown]
  - Hypothyroidism [Unknown]
  - Intracranial venous sinus thrombosis [Unknown]
  - Adenotonsillectomy [Unknown]
  - Asthma [Unknown]
  - Embolism venous [Unknown]

NARRATIVE: CASE EVENT DATE: 2002
